FAERS Safety Report 4492736-1 (Version None)
Quarter: 2004Q4

REPORT INFORMATION
  Report Type: 
  Country: None (occurrence: None)
  Receive Date: 20041102
  Receipt Date: 20041020
  Transmission Date: 20050328
  Serious: Yes (Hospitalization)
  Sender: FDA-Public Use
  Company Number: B0347545A

PATIENT
  Age: 92 Year
  Sex: Female

DRUGS (9)
  1. ZOVIRAX [Suspect]
     Indication: HERPES ZOSTER
     Dosage: 250 MG/TWICE PER DAY/INTRAVENOUS
     Route: 042
     Dates: start: 20041004, end: 20041006
  2. FLUVOXAMINE MALEATE [Concomitant]
  3. SULPIRIDE [Concomitant]
  4. COWPOX VIRUS VACCINE [Concomitant]
  5. HERBAL MEDICATION [Concomitant]
  6. MECOBALAMIN [Concomitant]
  7. ADENOSINE TRIPHOSPHATE [Concomitant]
  8. AMIKACIN SULFATE [Concomitant]
  9. BUPRENORPHINE HCL [Concomitant]

REACTIONS (4)
  - BLOOD CHLORIDE DECREASED [None]
  - DEPRESSED LEVEL OF CONSCIOUSNESS [None]
  - DISORIENTATION [None]
  - HYPONATRAEMIA [None]
